FAERS Safety Report 7544183-3 (Version None)
Quarter: 2011Q2

REPORT INFORMATION
  Report Type: 
  Country: None (occurrence: None)
  Receive Date: 20110613
  Receipt Date: 20061102
  Transmission Date: 20111010
  Serious: Yes (Life-Threatening, Hospitalization, Other)
  Sender: FDA-Public Use
  Company Number: PHFR2005GB03454

PATIENT
  Sex: Female

DRUGS (5)
  1. CLARITHROMYCIN [Concomitant]
     Route: 065
  2. ACETAMINOPHEN [Concomitant]
     Indication: PAIN
     Dosage: 1 G, PRN
     Route: 048
  3. CLOZAPINE [Suspect]
     Indication: SCHIZOPHRENIA
  4. VALPROATE SODIUM [Concomitant]
     Indication: BIPOLAR DISORDER
     Dosage: 1200 MG, BID
     Route: 048
  5. HYOSCINE HYDROBROMIDE [Concomitant]
     Indication: SALIVARY HYPERSECRETION
     Dosage: 300 MG, TID
     Route: 048

REACTIONS (11)
  - MYOCLONUS [None]
  - MEAN CELL VOLUME INCREASED [None]
  - ANKLE FRACTURE [None]
  - PNEUMONIA PRIMARY ATYPICAL [None]
  - LOWER RESPIRATORY TRACT INFECTION [None]
  - ANAEMIA [None]
  - FALL [None]
  - HAEMOGLOBIN DECREASED [None]
  - INFECTION [None]
  - C-REACTIVE PROTEIN INCREASED [None]
  - SEDATION [None]
